FAERS Safety Report 23891565 (Version 2)
Quarter: 2024Q2

REPORT INFORMATION
  Report Type: Spontaneous
  Country: US (occurrence: US)
  Receive Date: 20240524
  Receipt Date: 20240528
  Transmission Date: 20240716
  Serious: No
  Sender: FDA-Public Use
  Company Number: US-Dermavant-001123

PATIENT
  Age: 46 Year
  Sex: Male

DRUGS (5)
  1. TAPINAROF [Suspect]
     Active Substance: TAPINAROF
     Indication: Psoriasis
     Route: 061
  2. OMEGA 3 [Concomitant]
     Active Substance: CAPSAICIN
  3. VITAMIN D3 [Concomitant]
     Active Substance: CHOLECALCIFEROL
  4. MENAQUINONE 6 [Concomitant]
     Active Substance: MENAQUINONE 6
  5. PRILOSEC [Concomitant]
     Active Substance: OMEPRAZOLE MAGNESIUM

REACTIONS (2)
  - Pruritus [Unknown]
  - Skin discolouration [Unknown]
